FAERS Safety Report 24981703 (Version 1)
Quarter: 2025Q1

REPORT INFORMATION
  Report Type: Spontaneous
  Country: US (occurrence: None)
  Receive Date: 20250217
  Receipt Date: 20250217
  Transmission Date: 20250408
  Serious: No
  Sender: FDA-CTU
  Company Number: None

PATIENT
  Age: 41 Year
  Sex: Female

DRUGS (2)
  1. GAMUNEX-C [Suspect]
     Active Substance: HUMAN IMMUNOGLOBULIN G
  2. DEVICE [Suspect]
     Active Substance: DEVICE

REACTIONS (6)
  - Vascular access complication [None]
  - Device malfunction [None]
  - Complication associated with device [None]
  - Pruritus [None]
  - Device occlusion [None]
  - Infusion related reaction [None]

NARRATIVE: CASE EVENT DATE: 20250123
